FAERS Safety Report 12171053 (Version 1)
Quarter: 2016Q1

REPORT INFORMATION
  Report Type: Report from Study
  Country: VN (occurrence: VN)
  Receive Date: 20160311
  Receipt Date: 20160311
  Transmission Date: 20160526
  Serious: Yes (Other)
  Sender: FDA-Public Use
  Company Number: PHHY2016VN033049

PATIENT

DRUGS (1)
  1. FEMARA [Suspect]
     Active Substance: LETROZOLE
     Indication: PRODUCT USED FOR UNKNOWN INDICATION
     Dosage: UNK
     Route: 048

REACTIONS (11)
  - Haematotoxicity [Unknown]
  - Musculoskeletal pain [Unknown]
  - Diarrhoea [Unknown]
  - Rash [Unknown]
  - Hyperlipidaemia [Unknown]
  - Stomatitis [Unknown]
  - Decreased appetite [Unknown]
  - Pneumonia [Unknown]
  - Cardiac disorder [Unknown]
  - Fracture [Unknown]
  - Dyslipidaemia [Unknown]
